FAERS Safety Report 21394342 (Version 2)
Quarter: 2022Q4

REPORT INFORMATION
  Report Type: Spontaneous
  Country: US (occurrence: US)
  Receive Date: 20220930
  Receipt Date: 20221229
  Transmission Date: 20230113
  Serious: Yes (Other)
  Sender: FDA-Public Use
  Company Number: US-BRISTOL-MYERS SQUIBB COMPANY-2022-113932

PATIENT
  Age: 26 Year
  Sex: Female

DRUGS (2)
  1. OPDIVO [Suspect]
     Active Substance: NIVOLUMAB
     Indication: Soft tissue sarcoma
     Dosage: DOSE : OPDIVO 240 MG | YERVOY 82 MG;     FREQ : ^OPDIVO EVERY 2 WEEKS, YERVOY EVERY 6 WEEKS^. VIALS
     Route: 042
  2. YERVOY [Suspect]
     Active Substance: IPILIMUMAB
     Indication: Soft tissue sarcoma
     Dosage: DOSE : OPDIVO 240 MG | YERVOY 82 MG;     FREQ : ^OPDIVO EVERY 2 WEEKS, YERVOY EVERY 6 WEEKS^. VIALS
     Route: 042

REACTIONS (2)
  - Malignant neoplasm progression [Unknown]
  - Off label use [Unknown]
